FAERS Safety Report 13349275 (Version 1)
Quarter: 2017Q1

REPORT INFORMATION
  Report Type: Spontaneous
  Country: US (occurrence: US)
  Receive Date: 20170320
  Receipt Date: 20170320
  Transmission Date: 20170428
  Serious: No
  Sender: FDA-Public Use
  Company Number: PHEH2017US007563

PATIENT
  Sex: Male

DRUGS (2)
  1. RIVASTIGMINE. [Suspect]
     Active Substance: RIVASTIGMINE
     Indication: DEMENTIA
     Dosage: UNK
     Route: 065
  2. EXELON PATCH [Suspect]
     Active Substance: RIVASTIGMINE
     Indication: DEMENTIA
     Dosage: 9.5 MG, QD (10 CM2, 18 MG RIVASTIGMINE BASE)
     Route: 062

REACTIONS (5)
  - Nausea [Unknown]
  - Rash [Unknown]
  - Night sweats [Unknown]
  - Tremor [Unknown]
  - Diarrhoea [Unknown]
